FAERS Safety Report 10261827 (Version 1)
Quarter: 2014Q2

REPORT INFORMATION
  Report Type: Spontaneous
  Country: US (occurrence: None)
  Receive Date: 20140624
  Receipt Date: 20140624
  Transmission Date: 20141212
  Serious: No
  Sender: FDA-Public Use
  Company Number: None

PATIENT
  Age: 23 Year
  Sex: Male

DRUGS (1)
  1. ALPROLIX [Suspect]
     Indication: FACTOR IX DEFICIENCY
     Dosage: EVERY 10 DAYS
     Route: 042
     Dates: start: 20140617

REACTIONS (1)
  - Chest pain [None]
